FAERS Safety Report 19202339 (Version 7)
Quarter: 2021Q3

REPORT INFORMATION
  Report Type: Report from Study
  Country: CA (occurrence: CA)
  Receive Date: 20210430
  Receipt Date: 20210715
  Transmission Date: 20211014
  Serious: Yes (Other)
  Sender: FDA-Public Use
  Company Number: CA-NALPROPION PHARMACEUTICALS INC.-2021-012891

PATIENT

DRUGS (11)
  1. HYDROXYCHLOROQUINE [Concomitant]
     Active Substance: HYDROXYCHLOROQUINE
     Indication: RHEUMATOID ARTHRITIS
     Dosage: 200 MG (1 IN 1 D)
     Route: 048
     Dates: end: 202105
  2. CONTRAVE [Suspect]
     Active Substance: BUPROPION HYDROCHLORIDE\NALTREXONE HYDROCHLORIDE
     Dosage: 90MG/8MG; SECOND ATTEMPT (1 DOSAGE FORMS, 1 IN 1 D)
     Route: 048
     Dates: start: 20210421, end: 20210627
  3. AMLODIPINE [Concomitant]
     Active Substance: AMLODIPINE BESYLATE
     Indication: PRODUCT USED FOR UNKNOWN INDICATION
     Dosage: UNK
     Route: 065
  4. OZEMPIC [Concomitant]
     Active Substance: SEMAGLUTIDE
     Indication: WEIGHT DECREASED
     Dosage: 7 MONTHS AGO PRIOR TO DATE OF REPORT
     Route: 065
     Dates: start: 202009
  5. DICLOFENAC [Concomitant]
     Active Substance: DICLOFENAC
     Indication: PRODUCT USED FOR UNKNOWN INDICATION
     Dosage: UNK
     Route: 065
  6. XELJANZ [Concomitant]
     Active Substance: TOFACITINIB CITRATE
     Indication: RHEUMATOID ARTHRITIS
     Dosage: 11 MG (1 IN 1 D)
     Route: 048
     Dates: end: 202105
  7. OZEMPIC [Concomitant]
     Active Substance: SEMAGLUTIDE
     Dosage: 0.5 MG, 1 IN 1 WK
     Route: 065
  8. CONTRAVE [Suspect]
     Active Substance: BUPROPION HYDROCHLORIDE\NALTREXONE HYDROCHLORIDE
     Dosage: 90MG/8MG (1 DOSAGE FORMS, 1 IN 12 HR)
     Route: 048
     Dates: start: 20210628
  9. RAMIPRIL. [Concomitant]
     Active Substance: RAMIPRIL
     Indication: HYPERTENSION
     Dosage: 10 MG (1 IN 1 D)
     Route: 048
  10. METHOTREXATE. [Concomitant]
     Active Substance: METHOTREXATE
     Indication: RHEUMATOID ARTHRITIS
     Dosage: 2 ML, 1 IN 1 WK
     Route: 065
     Dates: end: 202105
  11. CONTRAVE [Suspect]
     Active Substance: BUPROPION HYDROCHLORIDE\NALTREXONE HYDROCHLORIDE
     Indication: WEIGHT CONTROL
     Dosage: 90MG/8MG; FIRST ATTEMPT (1 DOSAGE FORMS, 1 IN 1 D)
     Route: 048
     Dates: start: 20210413, end: 20210416

REACTIONS (11)
  - Respiratory tract irritation [Recovering/Resolving]
  - Osteoarthritis [Not Recovered/Not Resolved]
  - Dyspnoea [Recovering/Resolving]
  - Somnolence [Unknown]
  - Chest pain [Recovered/Resolved]
  - Pneumonitis [Recovering/Resolving]
  - Pain in extremity [Unknown]
  - Hyperhidrosis [Recovering/Resolving]
  - Joint instability [Unknown]
  - Muscle strain [Recovering/Resolving]
  - Drug titration error [Unknown]

NARRATIVE: CASE EVENT DATE: 2021
